FAERS Safety Report 22325764 (Version 1)
Quarter: 2023Q2

REPORT INFORMATION
  Report Type: Spontaneous
  Country: US (occurrence: US)
  Receive Date: 20230516
  Receipt Date: 20230516
  Transmission Date: 20230721
  Serious: No
  Sender: FDA-Public Use
  Company Number: US-ANIPHARMA-2023-US-003065

PATIENT
  Age: 52 Year
  Sex: Male

DRUGS (1)
  1. CORTICOTROPIN [Suspect]
     Active Substance: CORTICOTROPIN
     Indication: Keratitis
     Dosage: 80 UNITS (1 ML)  2X/WEEK
     Route: 058
     Dates: start: 20221209, end: 20230127

REACTIONS (9)
  - Urinary incontinence [Recovered/Resolved]
  - Insomnia [Recovered/Resolved]
  - Salt craving [Recovered/Resolved]
  - Swelling face [Recovered/Resolved]
  - Petechiae [Recovered/Resolved]
  - Abscess limb [Recovered/Resolved]
  - Mood swings [Recovered/Resolved]
  - Confusional state [Recovered/Resolved]
  - Chromatopsia [Recovered/Resolved]

NARRATIVE: CASE EVENT DATE: 20221220
